FAERS Safety Report 25403061 (Version 2)
Quarter: 2025Q2

REPORT INFORMATION
  Report Type: Spontaneous
  Country: US (occurrence: US)
  Receive Date: 20250605
  Receipt Date: 20250613
  Transmission Date: 20250717
  Serious: No
  Sender: SANOFI AVENTIS
  Company Number: US-SANOFI-02542094

PATIENT
  Age: 40 Year
  Sex: Female

DRUGS (3)
  1. LANTUS SOLOSTAR [Suspect]
     Active Substance: INSULIN GLARGINE
     Indication: Type 2 diabetes mellitus
     Dosage: 30 IU, BID
     Route: 065
     Dates: start: 2025, end: 202506
  2. LANTUS SOLOSTAR [Suspect]
     Active Substance: INSULIN GLARGINE
     Dosage: 35 IU, BID
     Route: 065
     Dates: start: 20250610
  3. RHOGAM [Concomitant]
     Active Substance: HUMAN RHO(D) IMMUNE GLOBULIN
     Dates: start: 20250601

REACTIONS (4)
  - Blood glucose increased [Unknown]
  - Maternal exposure during pregnancy [Unknown]
  - Product dispensing error [Unknown]
  - Off label use [Unknown]

NARRATIVE: CASE EVENT DATE: 20250101
